FAERS Safety Report 5774155-0 (Version None)
Quarter: 2008Q2

REPORT INFORMATION
  Report Type: 
  Country: None (occurrence: None)
  Receive Date: 20080616
  Receipt Date: 20080603
  Transmission Date: 20081010
  Serious: Yes (Life-Threatening, Hospitalization, Other)
  Sender: FDA-Public Use
  Company Number: JP-JNJFOC-20080505089

PATIENT
  Sex: Male
  Weight: 50 kg

DRUGS (12)
  1. REMICADE [Suspect]
     Route: 042
  2. REMICADE [Suspect]
     Indication: CROHN'S DISEASE
     Route: 042
  3. PENTASA [Concomitant]
     Dosage: DOSE = 12 TAB
     Route: 048
  4. PENTASA [Concomitant]
     Indication: CROHN'S DISEASE
     Dosage: DOSE = 12 TAB / 6 TAB DAILY
     Route: 048
  5. GLAKAY [Concomitant]
     Indication: CROHN'S DISEASE
     Dosage: DOSE = 45MG/22.5MG DAILY
     Route: 048
  6. BERBERINE CHLORIDE [Concomitant]
     Dosage: DOSE = 3 TAB/1TAB DAILY
     Route: 048
  7. BERBERINE CHLORIDE [Concomitant]
     Indication: CROHN'S DISEASE
     Route: 048
  8. ENSURE LIQUID [Concomitant]
     Indication: CROHN'S DISEASE
     Dosage: ^6 CANS/TIME^
     Route: 048
  9. RICE GRUEL THERAPY [Concomitant]
  10. PROMAC [Concomitant]
     Indication: CROHN'S DISEASE
     Dosage: DOSE = 112.5 MG/ 56.25 MG DAILY
     Route: 048
  11. BIOFERMIN [Concomitant]
     Indication: CROHN'S DISEASE
     Dosage: DOSE = 3 TAB/1.5 TAB DAILY
     Route: 048
  12. FERROMIA [Concomitant]
     Indication: CROHN'S DISEASE
     Dosage: DOSE = 100MG/50MG DAILY
     Route: 048

REACTIONS (3)
  - INTESTINAL PERFORATION [None]
  - PERITONITIS [None]
  - PSEUDOMEMBRANOUS COLITIS [None]
